FAERS Safety Report 9804770 (Version 1)
Quarter: 2014Q1

REPORT INFORMATION
  Report Type: Spontaneous
  Country: IT (occurrence: IT)
  Receive Date: 20140108
  Receipt Date: 20140108
  Transmission Date: 20141002
  Serious: Yes (Other)
  Sender: FDA-Public Use
  Company Number: IT-BAXTER-2014BAX000319

PATIENT
  Age: 64 Year
  Sex: Male

DRUGS (7)
  1. KIOVIG 100 MG/ML SOLUTION FOR INFUSION [Suspect]
     Indication: URTICARIA CHRONIC
     Route: 042
  2. KIOVIG 100 MG/ML SOLUTION FOR INFUSION [Suspect]
     Indication: OFF LABEL USE
  3. PREDNISONE [Suspect]
     Indication: PRURITUS
  4. EBASTINE [Suspect]
     Indication: URTICARIA
  5. TACROLIMUS [Suspect]
     Indication: PRODUCT USED FOR UNKNOWN INDICATION
  6. CINNARIZINE [Suspect]
     Indication: URTICARIA CHRONIC
  7. CINNARIZINE [Suspect]
     Indication: OFF LABEL USE

REACTIONS (2)
  - Drug ineffective [Unknown]
  - Pruritus [Recovered/Resolved]
